FAERS Safety Report 10256317 (Version 1)
Quarter: 2014Q2

REPORT INFORMATION
  Report Type: Report from Study
  Country: BR (occurrence: BR)
  Receive Date: 20140624
  Receipt Date: 20140624
  Transmission Date: 20141212
  Serious: Yes (Other)
  Sender: FDA-Public Use
  Company Number: BR-JNJFOC-20120909108

PATIENT
  Age: 72 Year
  Sex: Male
  Weight: 85 kg

DRUGS (14)
  1. RIVAROXABAN [Suspect]
     Indication: CORONARY ARTERIAL STENT INSERTION
     Route: 048
     Dates: start: 20120905, end: 20120911
  2. SIMVASTATIN [Concomitant]
     Indication: BLOOD CHOLESTEROL ABNORMAL
     Route: 048
  3. METFORMIN [Concomitant]
     Indication: DIABETES MELLITUS
     Route: 048
  4. LOSARTAN [Concomitant]
     Indication: HYPERTENSION
     Route: 048
  5. LEVOTHYROXINE [Concomitant]
     Indication: HORMONE LEVEL ABNORMAL
     Route: 048
  6. CARVEDILOL [Concomitant]
     Indication: CARDIAC DISORDER
     Route: 048
  7. SERTRALINE HYDROCHLORIDE [Concomitant]
     Indication: DEPRESSION
     Route: 048
     Dates: start: 201209
  8. INSULIN [Concomitant]
     Indication: DIABETES MELLITUS
     Route: 058
  9. MANEVAC [Concomitant]
     Indication: CARDIAC DISORDER
     Route: 048
  10. TRAVISCO [Concomitant]
     Indication: CARDIAC DISORDER
     Route: 048
  11. DIGOXINE [Concomitant]
     Indication: CARDIAC DISORDER
     Route: 048
  12. OMEPRAZOLE [Concomitant]
     Route: 048
  13. ESCITALOPRAM OXALATE [Concomitant]
     Indication: DEPRESSION
     Route: 048
  14. CEBRALAT [Concomitant]
     Indication: CARDIOVASCULAR DISORDER
     Route: 048

REACTIONS (3)
  - Amnesia [Recovering/Resolving]
  - Somnolence [Recovering/Resolving]
  - Dizziness [Recovering/Resolving]
